FAERS Safety Report 8026379-X (Version None)
Quarter: 2012Q1

REPORT INFORMATION
  Report Type: 
  Country: None (occurrence: None)
  Receive Date: 20120105
  Receipt Date: 20120104
  Transmission Date: 20120608
  Serious: Yes (Other)
  Sender: FDA-Public Use
  Company Number: JP-ABBOTT-12P-087-0889201-00

PATIENT
  Age: 15 Year
  Sex: Male
  Weight: 39 kg

DRUGS (2)
  1. CEFDINIR [Suspect]
     Route: 048
     Dates: start: 20111224
  2. CEFDINIR [Suspect]
     Indication: PURULENCE
     Route: 048
     Dates: start: 20111202, end: 20111208

REACTIONS (3)
  - ERYTHEMA [None]
  - HYPERTHERMIA [None]
  - PYREXIA [None]
